FAERS Safety Report 9941778 (Version 2)
Quarter: 2014Q1

REPORT INFORMATION
  Report Type: Report from Study
  Country: US (occurrence: US)
  Receive Date: 20140303
  Receipt Date: 20140303
  Transmission Date: 20141002
  Serious: No
  Sender: FDA-Public Use
  Company Number: US-ABBVIE-12P-163-1028613-00

PATIENT
  Age: 52 Year
  Sex: Female

DRUGS (15)
  1. HUMIRA [Suspect]
     Indication: CROHN^S DISEASE
     Dates: start: 20121207, end: 20121207
  2. HUMIRA [Suspect]
     Dates: start: 20121222, end: 20121222
  3. HUMIRA [Suspect]
  4. CIPROFLOXACIN [Concomitant]
     Indication: ABSCESS INTESTINAL
     Dosage: FOR 30 DAYS
  5. FLAGYL [Concomitant]
     Indication: ABSCESS INTESTINAL
     Dosage: FOR 2 MONTHS
  6. HYOSCYAMINE [Concomitant]
     Indication: MUSCLE SPASMS
  7. OMEPRAZOLE [Concomitant]
     Indication: CROHN^S DISEASE
  8. GABAPENTIN [Concomitant]
     Indication: BACK PAIN
  9. VICODIN [Concomitant]
     Indication: BACK PAIN
     Dosage: 5/500 MG
  10. VENTOLIN [Concomitant]
     Indication: ASTHMA
     Route: 055
  11. ADVAIR [Concomitant]
     Indication: ASTHMA
     Route: 055
  12. B12 [Concomitant]
     Indication: VITAMIN SUPPLEMENTATION
  13. D3 [Concomitant]
     Indication: VITAMIN SUPPLEMENTATION
  14. ZINC [Concomitant]
     Indication: MINERAL SUPPLEMENTATION
  15. PROBIOTIC [Concomitant]
     Indication: PROBIOTIC THERAPY
     Dosage: 30 BILLION UNITS, 1 IN 1 D

REACTIONS (10)
  - Wrong technique in drug usage process [Recovering/Resolving]
  - Nausea [Not Recovered/Not Resolved]
  - Vomiting [Not Recovered/Not Resolved]
  - Diarrhoea [Unknown]
  - Feeling abnormal [Recovering/Resolving]
  - Pyrexia [Not Recovered/Not Resolved]
  - Chills [Not Recovered/Not Resolved]
  - Abdominal pain [Not Recovered/Not Resolved]
  - Injection site pain [Not Recovered/Not Resolved]
  - Injection site haemorrhage [Not Recovered/Not Resolved]
